FAERS Safety Report 8246759-7 (Version None)
Quarter: 2012Q1

REPORT INFORMATION
  Report Type: 
  Country: None (occurrence: None)
  Receive Date: 20120316
  Receipt Date: 20090508
  Transmission Date: 20120608
  Serious: Yes (Life-Threatening, Hospitalization)
  Sender: FDA-Public Use
  Company Number: PHEH2009US04585

PATIENT
  Age: 84 Year
  Sex: Female

DRUGS (2)
  1. AVAPRO [Suspect]
     Dosage: 300 UNK, QD
  2. TEKTURNA [Suspect]
     Dosage: 300 UNK, QD

REACTIONS (2)
  - BLOOD POTASSIUM INCREASED [None]
  - HYPERKALAEMIA [None]
